FAERS Safety Report 10328192 (Version 1)
Quarter: 2014Q3

REPORT INFORMATION
  Report Type: Report from Study
  Country: US (occurrence: US)
  Receive Date: 20140721
  Receipt Date: 20140721
  Transmission Date: 20150326
  Serious: Yes (Hospitalization)
  Sender: FDA-Public Use
  Company Number: PHEH2014US014314

PATIENT
  Sex: Female
  Weight: 58.96 kg

DRUGS (23)
  1. ZOMETA [Suspect]
     Active Substance: ZOLEDRONIC ACID
     Dosage: 4 MG, UNK
  2. CALTRON-D [Concomitant]
     Dosage: UNK UKN, UNK
  3. FROVA [Concomitant]
     Active Substance: FROVATRIPTAN SUCCINATE
     Dosage: 2.5 MG, UNK
  4. CENTRUM SILVER [Concomitant]
     Active Substance: VITAMINS
     Dosage: UNK UKN, UNK
  5. ACYCLOVIR. [Concomitant]
     Active Substance: ACYCLOVIR
     Dosage: 200 MG, UNK
  6. MORPHINE SULPHATE [Concomitant]
     Active Substance: MORPHINE SULFATE
     Dosage: 20 MG, UNK
  7. REVLIMID [Concomitant]
     Active Substance: LENALIDOMIDE
     Dosage: 25 MG, UNK
  8. PANTOPRAZOLE [Concomitant]
     Active Substance: PANTOPRAZOLE SODIUM
     Dosage: 20 MG, UNK
  9. BACLOFEN. [Concomitant]
     Active Substance: BACLOFEN
     Dosage: UNK UKN, UNK
  10. ALLOPURINOL. [Concomitant]
     Active Substance: ALLOPURINOL
     Dosage: 100 MG, UNK
  11. KLONOPIN [Concomitant]
     Active Substance: CLONAZEPAM
     Dosage: 1 MG, UNK
  12. ASPIRIN. [Concomitant]
     Active Substance: ASPIRIN
     Dosage: 325 MG, UNK
  13. RESTASIS [Concomitant]
     Active Substance: CYCLOSPORINE
     Dosage: UNK UKN, UNK
  14. AMBIEN [Concomitant]
     Active Substance: ZOLPIDEM TARTRATE
     Dosage: 5 MG, UNK
  15. ZYRTEC [Concomitant]
     Active Substance: CETIRIZINE HYDROCHLORIDE
     Dosage: UNK UKN, UNK
  16. SENNA [Concomitant]
     Active Substance: SENNA LEAF\SENNOSIDES\SENNOSIDES A AND B
     Dosage: 15 MG, UNK
  17. LASIX [Concomitant]
     Active Substance: FUROSEMIDE
     Dosage: UNK UKN, UNK
  18. LIDOCAINE. [Concomitant]
     Active Substance: LIDOCAINE
     Dosage: 3 %, UNK
  19. PREMARIN [Concomitant]
     Active Substance: ESTROGENS, CONJUGATED
     Dosage: 0.625 MG, UNK
     Route: 067
  20. DEXAMETHASONE. [Concomitant]
     Active Substance: DEXAMETHASONE
     Dosage: UNK UKN, UNK
  21. WELLBUTRIN [Concomitant]
     Active Substance: BUPROPION HYDROCHLORIDE
     Dosage: UNK UKN, UNK
  22. SINGULAIR [Concomitant]
     Active Substance: MONTELUKAST SODIUM
     Dosage: 4 MG, UNK
  23. POTASSIUM PERCHLORATE [Concomitant]
     Active Substance: POTASSIUM PERCHLORATE
     Dosage: UNK UKN, UNK

REACTIONS (3)
  - Respiratory tract irritation [Unknown]
  - White blood cell count decreased [Unknown]
  - Pyrexia [Unknown]
